FAERS Safety Report 23293097 (Version 2)
Quarter: 2023Q4

REPORT INFORMATION
  Report Type: Spontaneous
  Country: JP (occurrence: JP)
  Receive Date: 20231213
  Receipt Date: 20231228
  Transmission Date: 20240109
  Serious: Yes (Hospitalization, Other)
  Sender: FDA-Public Use
  Company Number: JP-PHATHOM PHARMACEUTICALS INC.-2023PHT00293

PATIENT
  Age: 7 Decade
  Sex: Male
  Weight: 63 kg

DRUGS (6)
  1. VONOPRAZAN FUMARATE [Suspect]
     Active Substance: VONOPRAZAN FUMARATE
     Indication: Gastrooesophageal reflux disease
     Dosage: 10 MG, 1X/DAY
     Route: 048
  2. AMLODIPINE BESYLATE [Concomitant]
     Active Substance: AMLODIPINE BESYLATE
  3. PITAVASTATIN CALCIUM [Concomitant]
     Active Substance: PITAVASTATIN CALCIUM
  4. ALLOPURINOL [Concomitant]
     Active Substance: ALLOPURINOL
  5. TELMISARTAN [Concomitant]
     Active Substance: TELMISARTAN
  6. SILODOSIN [Concomitant]
     Active Substance: SILODOSIN

REACTIONS (5)
  - Decreased appetite [Unknown]
  - Shock haemorrhagic [Recovered/Resolved]
  - Cardio-respiratory arrest [Recovered/Resolved]
  - Behcet^s syndrome [Recovering/Resolving]
  - COVID-19 [Unknown]

NARRATIVE: CASE EVENT DATE: 20230828
